FAERS Safety Report 8317613-7 (Version None)
Quarter: 2012Q2

REPORT INFORMATION
  Report Type: 
  Country: None (occurrence: None)
  Receive Date: 20120427
  Receipt Date: 20090610
  Transmission Date: 20120825
  Serious: No
  Sender: FDA-Public Use
  Company Number: US-TEVA-2009006852

PATIENT
  Sex: Male
  Weight: 108.96 kg

DRUGS (3)
  1. NUVIGIL [Suspect]
     Indication: INSOMNIA
  2. BLOOD PRESSURE [Concomitant]
  3. NUVIGIL [Suspect]
     Indication: FATIGUE
     Dosage: 150 MILLIGRAM;
     Route: 048
     Dates: start: 20090608

REACTIONS (6)
  - ABDOMINAL DISCOMFORT [None]
  - NAUSEA [None]
  - DRUG EFFECT INCREASED [None]
  - DRY MOUTH [None]
  - INSOMNIA [None]
  - ANXIETY [None]
